FAERS Safety Report 10664554 (Version 3)
Quarter: 2015Q2

REPORT INFORMATION
  Report Type: Spontaneous
  Country: FR (occurrence: FR)
  Receive Date: 20141219
  Receipt Date: 20150605
  Transmission Date: 20150821
  Serious: Yes (Hospitalization, Other)
  Sender: FDA-Public Use
  Company Number: FR-ASTRAZENECA-2014SE96408

PATIENT
  Age: 18174 Day
  Sex: Female
  Weight: 60 kg

DRUGS (4)
  1. XEROQUEL [Suspect]
     Active Substance: QUETIAPINE FUMARATE
     Indication: MENTAL DISORDER
     Route: 048
     Dates: start: 20140808, end: 20141209
  2. MARSILID [Suspect]
     Active Substance: IPRONIAZID
     Indication: MENTAL DISORDER
     Route: 065
     Dates: start: 20140901, end: 20141209
  3. TERALITHE [Concomitant]
     Active Substance: LITHIUM CARBONATE
     Indication: MOOD ALTERED
     Dosage: ONE PER DAY
     Dates: start: 201406, end: 20141209
  4. LYSANXIA [Concomitant]
     Active Substance: PRAZEPAM
     Indication: ANXIOLYTIC THERAPY
     Dates: start: 201406, end: 20141209

REACTIONS (2)
  - Hepatitis [Recovered/Resolved]
  - Generalised oedema [Recovered/Resolved]

NARRATIVE: CASE EVENT DATE: 20141209
